FAERS Safety Report 11258306 (Version 1)
Quarter: 2015Q3

REPORT INFORMATION
  Report Type: Spontaneous
  Country: IN (occurrence: None)
  Receive Date: 20150708
  Receipt Date: 20150708
  Transmission Date: 20151125
  Serious: Yes (Death, Hospitalization, Other)
  Sender: FDA-Public Use
  Company Number: 2015HINLIT0539

PATIENT
  Age: 72 Year
  Sex: Female

DRUGS (10)
  1. RISPERIDONE. [Concomitant]
     Active Substance: RISPERIDONE
  2. CYCLOSERINE. [Suspect]
     Active Substance: CYCLOSERINE
     Indication: TUBERCULOSIS
  3. KANAMYCIN [Concomitant]
     Active Substance: KANAMYCIN\KANAMYCIN A SULFATE
  4. ETHAMBUTOL [Concomitant]
     Active Substance: ETHAMBUTOL HYDROCHLORIDE
  5. PYRAZINAMIDE. [Concomitant]
     Active Substance: PYRAZINAMIDE
  6. PYRIDOXINE [Concomitant]
     Active Substance: PYRIDOXINE
  7. LEVOFLOXACIN. [Suspect]
     Active Substance: LEVOFLOXACIN
     Indication: TUBERCULOSIS
  8. PARA-AMINOSALICYLIC ACID [Concomitant]
     Active Substance: AMINOSALICYLIC ACID
  9. OFLOXACIN (OFLOXACIN) (OFLOXACIN) [Suspect]
     Active Substance: OFLOXACIN
     Indication: TUBERCULOSIS
  10. ETHIONAMIDE [Concomitant]
     Active Substance: ETHIONAMIDE

REACTIONS (9)
  - Dysarthria [None]
  - Hypovolaemic shock [None]
  - Blood electrolytes abnormal [None]
  - Social avoidant behaviour [None]
  - Delirium [None]
  - Sleep disorder [None]
  - Hallucination, visual [None]
  - Diarrhoea [None]
  - Unresponsive to stimuli [None]
